FAERS Safety Report 18143659 (Version 1)
Quarter: 2020Q3

REPORT INFORMATION
  Report Type: Spontaneous
  Country: IT (occurrence: IT)
  Receive Date: 20200813
  Receipt Date: 20200813
  Transmission Date: 20201103
  Serious: Yes (Other)
  Sender: FDA-Public Use
  Company Number: IT-AUROBINDO-AUR-APL-2020-038065

PATIENT
  Age: 18 Year
  Sex: Female

DRUGS (3)
  1. FLECAINIDE 100 MG [Suspect]
     Active Substance: FLECAINIDE
     Indication: PRODUCT USED FOR UNKNOWN INDICATION
     Dosage: UNK
     Route: 042
  2. AMIODARONE [Suspect]
     Active Substance: AMIODARONE
     Indication: SUPRAVENTRICULAR TACHYARRHYTHMIA
     Dosage: 300 MILLIGRAM (BOLUS)
     Route: 065
  3. VERAPAMIL [Concomitant]
     Active Substance: VERAPAMIL HYDROCHLORIDE
     Indication: SUPRAVENTRICULAR TACHYARRHYTHMIA
     Dosage: UNK
     Route: 042

REACTIONS (3)
  - Hypotension [Recovered/Resolved]
  - Drug ineffective [Unknown]
  - Electrocardiogram QRS complex prolonged [Recovered/Resolved]
